FAERS Safety Report 17344045 (Version 1)
Quarter: 2020Q1

REPORT INFORMATION
  Report Type: Spontaneous
  Country: US (occurrence: US)
  Receive Date: 20200129
  Receipt Date: 20200129
  Transmission Date: 20200409
  Serious: No
  Sender: FDA-Public Use
  Company Number: US-ALLERGAN-1936835US

PATIENT
  Sex: Female
  Weight: 58.05 kg

DRUGS (1)
  1. BOTOX [Suspect]
     Active Substance: ONABOTULINUMTOXINA
     Indication: TENSION HEADACHE
     Dosage: UNK, SINGLE
     Route: 065
     Dates: start: 20190823, end: 20190823

REACTIONS (3)
  - Brow ptosis [Recovering/Resolving]
  - Off label use [Unknown]
  - Therapeutic response decreased [Unknown]
